FAERS Safety Report 8971152 (Version 1)
Quarter: 2012Q4

REPORT INFORMATION
  Report Type: Report from Study
  Country: GB (occurrence: GB)
  Receive Date: 20121218
  Receipt Date: 20121218
  Transmission Date: 20130627
  Serious: Yes (Hospitalization)
  Sender: FDA-Public Use
  Company Number: GB-PFIZER INC-2012314285

PATIENT
  Age: 30 Year
  Sex: Female
  Weight: 39.8 kg

DRUGS (6)
  1. EPIRUBICIN HCL [Suspect]
     Indication: BREAST CANCER
     Dosage: cyclic, DOSAGE FORM: 75MG/M2 INFUSION, FREQ : 3 WEEKLY / FREQUENCY: 3 WEEKLY. (80 mg)
     Route: 042
     Dates: start: 20090930
  2. CYCLOPHOSPHAMIDE [Suspect]
     Indication: BREAST CANCER
     Dosage: cyclic, CYCLE 1, DOSAGE FORM: 800MG/M2 INFUSION. / FREQUENCY: 3 WEEKLY. (800 mg)
     Route: 042
     Dates: start: 20090930
  3. BEVACIZUMAB [Suspect]
     Indication: BREAST CANCER
     Dosage: cyclic, CYCLE 1. DOSAGE FORM: 15MG/KG INFUSION, FREQUENCY: 3 WEEKLY / FREQUECY: 3 WEEKLY (630 mg)
     Route: 042
     Dates: start: 20090930
  4. 5-FU [Concomitant]
     Indication: BREAST CANCER
     Dosage: cyclic, CYCLE 1. DOSAGE FORM: 600MG/M2 INFUSION., FREQ: 3 WEEKLY / FREQUENCY: 3 WEEKLY (800 mg)
     Route: 042
     Dates: start: 20090930
  5. CIPROFLOXACIN [Concomitant]
     Dosage: 500 mg, UNK
     Dates: start: 20091007
  6. FLUCONAZOLE [Concomitant]
     Dosage: 50 mg, UNK
     Dates: start: 20091007

REACTIONS (1)
  - Vaginal haemorrhage [Recovered/Resolved]
